FAERS Safety Report 26065829 (Version 1)
Quarter: 2025Q4

REPORT INFORMATION
  Report Type: Spontaneous
  Country: US (occurrence: None)
  Receive Date: 20251119
  Receipt Date: 20251119
  Transmission Date: 20260118
  Serious: Yes (Hospitalization)
  Sender: FDA-CTU
  Company Number: None

PATIENT
  Sex: Male

DRUGS (7)
  1. PULMOZYME [Suspect]
     Active Substance: DORNASE ALFA
     Indication: Cystic fibrosis
     Dosage: OTHER QUANTITY : 2.5 NML;?FREQUENCY : DAILY;?OTHER ROUTE : VIA NEBULIZER;?
     Route: 050
     Dates: start: 20160119
  2. ALTERA [Concomitant]
  3. CAYSTON [Concomitant]
     Active Substance: AZTREONAM
  4. LEVOFLOXACIN [Concomitant]
     Active Substance: LEVOFLOXACIN
  5. LORATADINE [Concomitant]
     Active Substance: LORATADINE
  6. PARI AL TERA NEBULIZER HAN [Concomitant]
  7. VITAMIN D [Concomitant]
     Active Substance: VITAMIN D NOS

REACTIONS (2)
  - Pneumonia [None]
  - Loss of personal independence in daily activities [None]
